FAERS Safety Report 26051703 (Version 1)
Quarter: 2025Q4

REPORT INFORMATION
  Report Type: Spontaneous
  Country: US (occurrence: US)
  Receive Date: 20251117
  Receipt Date: 20251117
  Transmission Date: 20260117
  Serious: Yes (Hospitalization)
  Sender: LUPIN
  Company Number: US-LUPIN PHARMACEUTICALS INC.-2025-10174

PATIENT
  Age: 14 Year
  Sex: Male

DRUGS (1)
  1. AMLODIPINE [Suspect]
     Active Substance: AMLODIPINE BESYLATE
     Indication: Product used for unknown indication
     Dosage: UNK (32 TABLETS OF 10 MILLIGRAM)

REACTIONS (5)
  - Toxicity to various agents [Unknown]
  - Hypotension [Recovered/Resolved]
  - Nausea [Unknown]
  - Vomiting [Unknown]
  - Overdose [Recovered/Resolved]
